FAERS Safety Report 26185819 (Version 1)
Quarter: 2025Q4

REPORT INFORMATION
  Report Type: Spontaneous
  Country: US (occurrence: US)
  Receive Date: 20251222
  Receipt Date: 20251222
  Transmission Date: 20260118
  Serious: Yes (Hospitalization)
  Sender: TAKEDA
  Company Number: US-TAKEDA-2025TUS114565

PATIENT
  Age: 71 Year
  Sex: Female

DRUGS (3)
  1. TAKHZYRO [Suspect]
     Active Substance: LANADELUMAB-FLYO
     Indication: Immune system disorder
     Dosage: 300 MILLIGRAM, Q2WEEKS
  2. TAKHZYRO [Suspect]
     Active Substance: LANADELUMAB-FLYO
  3. TAKHZYRO [Suspect]
     Active Substance: LANADELUMAB-FLYO

REACTIONS (2)
  - Fall [Unknown]
  - Hereditary angioedema [Unknown]

NARRATIVE: CASE EVENT DATE: 20250511
